FAERS Safety Report 16509678 (Version 1)
Quarter: 2019Q3

REPORT INFORMATION
  Report Type: Spontaneous
  Country: US (occurrence: US)
  Receive Date: 20190701
  Receipt Date: 20190701
  Transmission Date: 20191004
  Serious: No
  Sender: FDA-Public Use
  Company Number: None

PATIENT
  Age: 11 Year
  Sex: Male
  Weight: 22.5 kg

DRUGS (1)
  1. BENADRYL ULTRATABS [Suspect]
     Active Substance: DIPHENHYDRAMINE HYDROCHLORIDE
     Indication: PRURITUS
     Dosage: ?          QUANTITY:1 TABLET(S);?
     Route: 048

REACTIONS (3)
  - Fatigue [None]
  - Dizziness [None]
  - Hypoaesthesia oral [None]

NARRATIVE: CASE EVENT DATE: 20190701
